FAERS Safety Report 6636401-0 (Version None)
Quarter: 2010Q1

REPORT INFORMATION
  Report Type: 
  Country: None (occurrence: None)
  Receive Date: 20100316
  Receipt Date: 20100309
  Transmission Date: 20100710
  Serious: Yes (Death, Other)
  Sender: FDA-Public Use
  Company Number: DE-ELI_LILLY_AND_COMPANY-DE201001005731

PATIENT
  Age: 69 Year
  Sex: Male
  Weight: 77 kg

DRUGS (9)
  1. BYETTA [Suspect]
     Indication: TYPE 2 DIABETES MELLITUS
     Dosage: UNK, UNKNOWN
     Route: 058
     Dates: start: 20071206, end: 20091201
  2. SARTAN [Concomitant]
     Dosage: UNK, UNKNOWN
  3. BETA BLOCKING AGENTS [Concomitant]
     Dosage: UNK, UNKNOWN
  4. MARCUMAR [Concomitant]
     Dosage: UNK, UNKNOWN
     Route: 065
     Dates: start: 20081001
  5. LOCOL [Concomitant]
     Dosage: 20 D/F, DAILY (1/D)
     Route: 065
  6. APROVEL [Concomitant]
     Dosage: 300 D/F, DAILY (1/D)
     Route: 065
  7. OMNIC OCAS [Concomitant]
     Dosage: 0.4 D/F, DAILY (1/D)
     Route: 065
  8. METFORMIN HYDROCHLORIDE [Concomitant]
     Dosage: 850 D/F, OTHER (1-0-2)
     Route: 065
  9. DIGIMERCK [Concomitant]
     Dosage: UNK, UNKNOWN
     Route: 065

REACTIONS (1)
  - PANCREATIC CARCINOMA METASTATIC [None]
